FAERS Safety Report 21993350 (Version 1)
Quarter: 2023Q1

REPORT INFORMATION
  Report Type: Spontaneous
  Country: GB (occurrence: GB)
  Receive Date: 20230215
  Receipt Date: 20230215
  Transmission Date: 20230417
  Serious: Yes (Hospitalization, Other)
  Sender: FDA-Public Use
  Company Number: None

PATIENT
  Age: 39 Year
  Sex: Female

DRUGS (7)
  1. AKYNZEO (NETUPITANT\PALONOSETRON) [Suspect]
     Active Substance: NETUPITANT\PALONOSETRON
     Indication: Product used for unknown indication
     Dosage: UNK, SINGLE
     Route: 048
     Dates: start: 20230123, end: 20230123
  2. ATROPINE [Suspect]
     Active Substance: ATROPINE
     Indication: Cholinergic syndrome
     Dosage: 0.25 MILLIGRAM, PRN
     Route: 058
     Dates: start: 20230123
  3. DEXAMETHASONE [Suspect]
     Active Substance: DEXAMETHASONE
     Indication: Adverse drug reaction
     Dosage: 2 MILLIGRAM, SINGLE
     Dates: start: 20230123
  4. OXALIPLATIN [Suspect]
     Active Substance: OXALIPLATIN
     Indication: Product used for unknown indication
     Dosage: 200 MILLIGRAM IN 250ML OF GLUCOSE
     Route: 042
     Dates: start: 20230123
  5. LEUCOVORIN CALCIUM [Concomitant]
     Active Substance: LEUCOVORIN CALCIUM
     Indication: Product used for unknown indication
     Dosage: 700 MILLIGRAM IN 250 ML GLUCOSE
     Route: 042
     Dates: start: 20230123
  6. IRINOTECAN [Concomitant]
     Active Substance: IRINOTECAN
     Indication: Product used for unknown indication
     Dosage: 360 MILLIGRAM IN 250 ML GLUCOSE
     Route: 042
     Dates: start: 20230123
  7. FLUOROURACIL [Concomitant]
     Active Substance: FLUOROURACIL
     Indication: Product used for unknown indication
     Dosage: 5650 MILLIGRAM, UNKNOWN
     Route: 042
     Dates: start: 20230123

REACTIONS (4)
  - Colitis [Recovering/Resolving]
  - Neutropenic sepsis [Recovering/Resolving]
  - Colitis [Recovering/Resolving]
  - Off label use [Unknown]

NARRATIVE: CASE EVENT DATE: 20230123
